FAERS Safety Report 4705123-5 (Version None)
Quarter: 2005Q3

REPORT INFORMATION
  Report Type: 
  Country: None (occurrence: None)
  Receive Date: 20050701
  Receipt Date: 20050621
  Transmission Date: 20060218
  Serious: Yes (Hospitalization)
  Sender: FDA-Public Use
  Company Number: 200512100FR

PATIENT
  Age: 78 Year
  Sex: Female

DRUGS (2)
  1. LOVENOX [Suspect]
     Indication: PROPHYLAXIS
     Route: 058
     Dates: start: 20050224, end: 20050226
  2. CALCIPARINE [Suspect]
     Indication: PROPHYLAXIS
     Route: 058
     Dates: start: 20050216, end: 20050224

REACTIONS (3)
  - ECZEMA [None]
  - EOSINOPHILIA [None]
  - RASH ERYTHEMATOUS [None]
